FAERS Safety Report 9170211 (Version 1)
Quarter: 2013Q1

REPORT INFORMATION
  Report Type: Spontaneous
  Country: US (occurrence: None)
  Receive Date: 20130311
  Receipt Date: 20130311
  Transmission Date: 20140127
  Serious: Yes (Other)
  Sender: FDA-Public Use
  Company Number: AUR-APL-2013-02084

PATIENT
  Age: 35 Year
  Sex: Male

DRUGS (8)
  1. DIDANOSINE [Suspect]
  2. ZIDOVUDINE [Suspect]
  3. NELFINAVIR MESILATE [Suspect]
  4. EFAVIRENZ [Suspect]
  5. ABACAVIR [Suspect]
  6. COMBIVIR [Suspect]
  7. FOSAMPRENAVIR CALCIUM [Suspect]
  8. LOPINAVIR W/RITONAVIR [Suspect]
     Indication: HIV INFECTION

REACTIONS (2)
  - Chorioretinal atrophy [None]
  - Retinal toxicity [None]
